FAERS Safety Report 8308875-0 (Version None)
Quarter: 2012Q2

REPORT INFORMATION
  Report Type: 
  Country: None (occurrence: None)
  Receive Date: 20120424
  Receipt Date: 20110404
  Transmission Date: 20120825
  Serious: Yes (Other)
  Sender: FDA-Public Use
  Company Number: US-TEVA-2011001617

PATIENT
  Age: 64 Year
  Sex: Female
  Weight: 68.1 kg

DRUGS (11)
  1. DICYCLOMINE [Concomitant]
  2. PROVIGIL [Suspect]
     Indication: SLEEP APNOEA SYNDROME
     Dosage: 200 MILLIGRAM;
     Route: 048
     Dates: start: 20110201
  3. ZEGERID [Concomitant]
  4. ZOCOR [Concomitant]
  5. PROVIGIL [Suspect]
     Route: 048
     Dates: start: 20110101
  6. NEXIUM [Concomitant]
  7. CARDIZEM [Concomitant]
  8. RELPAX [Concomitant]
  9. POTASSIUM CHLORIDE [Concomitant]
  10. PROVIGIL [Suspect]
     Route: 048
     Dates: start: 20110101
  11. CELEXA [Concomitant]

REACTIONS (3)
  - TACHYCARDIA [None]
  - DRUG ADMINISTRATION ERROR [None]
  - SOMNOLENCE [None]
